FAERS Safety Report 18343785 (Version 3)
Quarter: 2020Q4

REPORT INFORMATION
  Report Type: Spontaneous
  Country: DE (occurrence: DE)
  Receive Date: 20201005
  Receipt Date: 20201130
  Transmission Date: 20210114
  Serious: Yes (Hospitalization, Other)
  Sender: FDA-Public Use
  Company Number: DE-GW PHARMA-202009DEGW03307

PATIENT

DRUGS (14)
  1. EPIDIOLEX [Suspect]
     Active Substance: CANNABIDIOL
     Indication: LENNOX-GASTAUT SYNDROME
     Dosage: 5 MG/KG/DAY, 175 MILLIGRAM, BID (175-0-175-0)
     Route: 048
     Dates: start: 20191227, end: 202001
  2. FRISIUM [Concomitant]
     Active Substance: CLOBAZAM
     Dosage: 5 MILLIGRAM, BID (5-0-5-0) (DOSE REDUCED)
     Route: 065
     Dates: start: 2020, end: 2020
  3. EPIDIOLEX [Suspect]
     Active Substance: CANNABIDIOL
     Dosage: UNKNOWN DOSE
     Route: 048
     Dates: start: 20200220, end: 20200304
  4. FRISIUM [Concomitant]
     Active Substance: CLOBAZAM
     Dosage: 20 MILLIGRAM, BID (20-0-20-0) (DOSE REDUCED)
     Route: 065
     Dates: start: 20200115, end: 202003
  5. INOVELON [Concomitant]
     Active Substance: RUFINAMIDE
     Indication: LENNOX-GASTAUT SYNDROME
     Dosage: 400 MILLIGRAM, BID (400-0-400-0)
     Route: 065
     Dates: start: 20191227, end: 202001
  6. EPIDIOLEX [Suspect]
     Active Substance: CANNABIDIOL
     Dosage: 10 MG/KG/DAY, 350 MILLIGRAM, BID (350-0-350-0)
     Route: 048
     Dates: start: 20200116, end: 202001
  7. FYCOMPA [Concomitant]
     Active Substance: PERAMPANEL
     Indication: LENNOX-GASTAUT SYNDROME
     Dosage: 10 MILLIGRAM, QD
     Route: 065
     Dates: start: 20191227
  8. VIMPAT [Concomitant]
     Active Substance: LACOSAMIDE
     Indication: LENNOX-GASTAUT SYNDROME
     Dosage: 200 MILLIGRAM, BID
     Route: 065
     Dates: start: 20191227
  9. EPIDIOLEX [Suspect]
     Active Substance: CANNABIDIOL
     Dosage: 20 MG/KG/DAY, 700 MILLIGRAM, BID
     Route: 048
     Dates: start: 20200123, end: 20200207
  10. FRISIUM [Concomitant]
     Active Substance: CLOBAZAM
     Dosage: 10 MILLIGRAM, QD
     Route: 065
     Dates: start: 2020
  11. EPIDIOLEX [Suspect]
     Active Substance: CANNABIDIOL
     Dosage: 10.71 MG/KG/DAY, 750 MILLIGRAM, QD (350-0-400-0)
     Route: 048
     Dates: start: 202004
  12. FRISIUM [Concomitant]
     Active Substance: CLOBAZAM
     Indication: LENNOX-GASTAUT SYNDROME
     Dosage: 30 MILLIGRAM, BID (30-0-30-0)
     Route: 065
     Dates: start: 20191227, end: 202001
  13. FRISIUM [Concomitant]
     Active Substance: CLOBAZAM
     Dosage: 40 MILLIGRAM, QD
     Route: 065
     Dates: start: 2020, end: 2020
  14. EPIDIOLEX [Suspect]
     Active Substance: CANNABIDIOL
     Dosage: 4 MG/KG/DAY, 140 MILLIGRAM, BID
     Route: 048
     Dates: start: 20200305, end: 202004

REACTIONS (9)
  - Sopor [Recovered/Resolved]
  - Hepatic encephalopathy [Recovered/Resolved]
  - Disturbance in attention [Recovered/Resolved]
  - Drug-induced liver injury [Recovered/Resolved]
  - Cognitive disorder [Recovered/Resolved]
  - Lethargy [Recovered/Resolved]
  - Fatigue [Recovered/Resolved]
  - General physical health deterioration [Recovered/Resolved]
  - Somnolence [Recovered/Resolved]

NARRATIVE: CASE EVENT DATE: 2020
